FAERS Safety Report 9445713 (Version 2)
Quarter: 2013Q4

REPORT INFORMATION
  Report Type: Spontaneous
  Country: FR (occurrence: FR)
  Receive Date: 20130807
  Receipt Date: 20131014
  Transmission Date: 20140711
  Serious: Yes (Hospitalization)
  Sender: FDA-Public Use
  Company Number: FR-PFIZER INC-2013224644

PATIENT
  Age: 92 Year
  Sex: Female

DRUGS (4)
  1. ACUILIX [Suspect]
     Indication: HYPERTENSION
     Dosage: [QUINAPRIL 20 MG]L/ [HYDROCHLOROTHIAZIDE12.5 MG], 1X/DAY
     Route: 048
     Dates: end: 20130416
  2. ROCEPHINE [Suspect]
     Indication: BRONCHITIS
     Dosage: 1 G, DAILY
     Route: 042
     Dates: start: 20130415, end: 20130417
  3. TANAKAN [Concomitant]
     Dosage: UNK
  4. KARDEGIC [Concomitant]
     Dosage: 160 MG, UNK
     Route: 048

REACTIONS (5)
  - Hyponatraemia [Recovered/Resolved]
  - Renal failure [Recovering/Resolving]
  - Hyperuricaemia [Recovering/Resolving]
  - Blood alkaline phosphatase increased [Recovering/Resolving]
  - Aspartate aminotransferase increased [Recovering/Resolving]
